FAERS Safety Report 14901747 (Version 3)
Quarter: 2018Q3

REPORT INFORMATION
  Report Type: Report from Study
  Country: US (occurrence: US)
  Receive Date: 20180516
  Receipt Date: 20180817
  Transmission Date: 20181010
  Serious: Yes (Other)
  Sender: FDA-Public Use
  Company Number: US-TESARO, INC-US-2018TSO00300

PATIENT
  Sex: Female

DRUGS (5)
  1. ZEJULA [Suspect]
     Active Substance: NIRAPARIB
     Indication: OVARIAN CANCER
     Dosage: 300 MG, QD
     Route: 048
     Dates: start: 20180109
  2. ZEJULA [Suspect]
     Active Substance: NIRAPARIB
     Dosage: 300 MG, QD
     Route: 048
  3. ZEJULA [Suspect]
     Active Substance: NIRAPARIB
     Dosage: 300 MG, UNK
     Route: 048
  4. CYCLOBENZAPRINE. [Suspect]
     Active Substance: CYCLOBENZAPRINE
     Indication: MUSCLE SPASMS
     Dosage: UNK
     Route: 065
  5. ZEJULA [Suspect]
     Active Substance: NIRAPARIB
     Dosage: 300 MG, QD
     Route: 048

REACTIONS (11)
  - Dysgeusia [Unknown]
  - Urine odour abnormal [Not Recovered/Not Resolved]
  - Restless legs syndrome [Unknown]
  - Nausea [Not Recovered/Not Resolved]
  - Headache [Not Recovered/Not Resolved]
  - Weight decreased [Unknown]
  - Hypersensitivity [Not Recovered/Not Resolved]
  - Vomiting [Not Recovered/Not Resolved]
  - Arthralgia [Not Recovered/Not Resolved]
  - Muscle spasms [Not Recovered/Not Resolved]
  - Dyspnoea [Unknown]
